FAERS Safety Report 4515081-4 (Version None)
Quarter: 2004Q4

REPORT INFORMATION
  Report Type: 
  Country: None (occurrence: None)
  Receive Date: 20041201
  Receipt Date: 20041122
  Transmission Date: 20050328
  Serious: Yes (Hospitalization)
  Sender: FDA-Public Use
  Company Number: MX-MERCK-0411MEX00004

PATIENT
  Age: 77 Year
  Sex: Male

DRUGS (3)
  1. COSOPT [Suspect]
     Indication: OPEN ANGLE GLAUCOMA
     Route: 047
     Dates: start: 20040622, end: 20041001
  2. COSOPT [Suspect]
     Indication: CATARACT
     Route: 047
     Dates: start: 20040622, end: 20041001
  3. ASPIRIN [Concomitant]
     Indication: PROPHYLAXIS
     Route: 048
     Dates: start: 20040101, end: 20040101

REACTIONS (2)
  - ABNORMAL BEHAVIOUR [None]
  - DEMENTIA ALZHEIMER'S TYPE [None]
